FAERS Safety Report 4637813-7 (Version None)
Quarter: 2005Q1

REPORT INFORMATION
  Report Type: 
  Country: None (occurrence: None)
  Receive Date: 20050325
  Receipt Date: 20041201
  Transmission Date: 20050727
  Serious: No
  Sender: FDA-Public Use
  Company Number: USA041284922

PATIENT
  Age: 59 Year
  Sex: Male
  Weight: 64 kg

DRUGS (6)
  1. FORTEO [Suspect]
     Indication: OSTEOPOROSIS
     Dosage: 20 UG/1 DAY
     Dates: start: 20041130
  2. TRAZODONE [Concomitant]
  3. LIBRAX [Concomitant]
  4. NEXIUM [Concomitant]
  5. NASONEX [Concomitant]
  6. SAW PALMETTO [Concomitant]

REACTIONS (1)
  - BLOOD BLISTER [None]
